FAERS Safety Report 13981080 (Version 1)
Quarter: 2017Q3

REPORT INFORMATION
  Report Type: Spontaneous
  Country: US (occurrence: US)
  Receive Date: 20170918
  Receipt Date: 20170918
  Transmission Date: 20171128
  Serious: No
  Sender: FDA-Public Use
  Company Number: US-TEVA-777906ACC

PATIENT

DRUGS (1)
  1. BUPROPION ACTAVIS [Suspect]
     Active Substance: BUPROPION
     Route: 065

REACTIONS (3)
  - Fatigue [Unknown]
  - Mood swings [Unknown]
  - Asthenia [Unknown]
